FAERS Safety Report 14585640 (Version 1)
Quarter: 2018Q1

REPORT INFORMATION
  Report Type: Spontaneous
  Country: US (occurrence: US)
  Receive Date: 20180301
  Receipt Date: 20180301
  Transmission Date: 20180509
  Serious: No
  Sender: FDA-Public Use
  Company Number: US-PFIZER INC-2018085008

PATIENT
  Sex: Female

DRUGS (2)
  1. BACTRIM DS [Interacting]
     Active Substance: SULFAMETHOXAZOLE\TRIMETHOPRIM
     Indication: INFECTION
     Dosage: UNK
  2. XELJANZ XR [Suspect]
     Active Substance: TOFACITINIB CITRATE
     Dosage: UNK

REACTIONS (6)
  - Rhinorrhoea [Unknown]
  - Nasal congestion [Unknown]
  - Drug interaction [Unknown]
  - Arthralgia [Unknown]
  - Peripheral swelling [Unknown]
  - Oropharyngeal pain [Unknown]
